FAERS Safety Report 7656078-5 (Version None)
Quarter: 2011Q3

REPORT INFORMATION
  Report Type: 
  Country: None (occurrence: None)
  Receive Date: 20110804
  Receipt Date: 20110720
  Transmission Date: 20111222
  Serious: Yes (Other)
  Sender: FDA-Public Use
  Company Number: GB-ARROW GEN-2011-11281

PATIENT
  Age: 61 Year
  Sex: Male

DRUGS (5)
  1. FORTISIP [Concomitant]
     Indication: MEDICAL DIET
     Dosage: 1 DF, BID
     Route: 048
  2. MIRTAZAPINE [Suspect]
     Indication: DEPRESSION
     Dosage: 15 MG, UNKNOWN
     Route: 048
     Dates: end: 20110707
  3. TAMSULOSIN HCL [Concomitant]
     Indication: URINARY TRACT DISORDER
     Dosage: 400 UG, UNKNOWN
     Route: 048
  4. FLUPENTHIXOL [Concomitant]
     Indication: DEPRESSION
     Dosage: 60 MG, UNKNOWN
     Route: 030
  5. PROCYCLIDINE HYDROCHLORIDE 2MG TAB [Concomitant]
     Indication: EXTRAPYRAMIDAL DISORDER
     Dosage: 5 MG, BID
     Route: 048

REACTIONS (1)
  - LYMPHOCYTE COUNT DECREASED [None]
